FAERS Safety Report 4447868-0 (Version None)
Quarter: 2004Q3

REPORT INFORMATION
  Report Type: 
  Country: None (occurrence: None)
  Receive Date: 20040910
  Receipt Date: 20040902
  Transmission Date: 20050211
  Serious: Yes (Hospitalization)
  Sender: FDA-Public Use
  Company Number: 2004UW18582

PATIENT
  Age: 64 Year
  Sex: Male
  Weight: 83.9154 kg

DRUGS (4)
  1. CRESTOR [Suspect]
     Indication: BLOOD CHOLESTEROL INCREASED
     Dosage: 20 MG
     Dates: start: 20040728, end: 20040803
  2. ZOCOR [Concomitant]
  3. ZETIA [Concomitant]
  4. ATENOLOL [Concomitant]

REACTIONS (6)
  - BACK PAIN [None]
  - BODY TEMPERATURE INCREASED [None]
  - INFECTION [None]
  - MUSCLE SPASMS [None]
  - WALKING AID USER [None]
  - WHITE BLOOD CELL COUNT INCREASED [None]
